FAERS Safety Report 4751647-4 (Version None)
Quarter: 2005Q3

REPORT INFORMATION
  Report Type: 
  Country: None (occurrence: None)
  Receive Date: 20050824
  Receipt Date: 20050314
  Transmission Date: 20060218
  Serious: Yes (Hospitalization)
  Sender: FDA-Public Use
  Company Number: PHRM2005FR01042

PATIENT
  Age: 85 Year
  Sex: Female
  Weight: 55 kg

DRUGS (3)
  1. ESIDRIX [Suspect]
     Dosage: 12.5 MG/DAY
     Route: 048
  2. STILNOX [Suspect]
     Dosage: 5 MG/DAY
     Route: 048
  3. EXELON [Suspect]
     Indication: DEMENTIA ALZHEIMER'S TYPE
     Dosage: 3 MG/DAY
     Route: 048
     Dates: start: 20050112, end: 20050120

REACTIONS (5)
  - CREATININE RENAL CLEARANCE DECREASED [None]
  - DEPRESSED LEVEL OF CONSCIOUSNESS [None]
  - GRAND MAL CONVULSION [None]
  - HYPONATRAEMIA [None]
  - ISCHAEMIC STROKE [None]
